FAERS Safety Report 14606113 (Version 2)
Quarter: 2018Q2

REPORT INFORMATION
  Report Type: Report from Study
  Country: US (occurrence: US)
  Receive Date: 20180307
  Receipt Date: 20180608
  Transmission Date: 20180711
  Serious: Yes (Death, Life-Threatening)
  Sender: FDA-Public Use
  Company Number: US-BIOGEN-2018BI00534998

PATIENT
  Age: 64 Year
  Sex: Female

DRUGS (1)
  1. AVONEX [Suspect]
     Active Substance: INTERFERON BETA-1A
     Indication: MULTIPLE SCLEROSIS
     Route: 030

REACTIONS (2)
  - Septic shock [Fatal]
  - Pneumonia [Unknown]

NARRATIVE: CASE EVENT DATE: 20171210
